FAERS Safety Report 20083252 (Version 1)
Quarter: 2021Q4

REPORT INFORMATION
  Report Type: Spontaneous
  Country: DE (occurrence: DE)
  Receive Date: 20211117
  Receipt Date: 20211117
  Transmission Date: 20220303
  Serious: Yes (Hospitalization)
  Sender: FDA-Public Use
  Company Number: DE-ADRED-07237-01

PATIENT
  Age: 80 Year
  Sex: Female
  Weight: 70 kg

DRUGS (7)
  1. TORSEMIDE [Suspect]
     Active Substance: TORSEMIDE
     Indication: Product used for unknown indication
     Dosage: 10 MG,  1-0-0-0
     Route: 065
  2. ASPIRIN [Suspect]
     Active Substance: ASPIRIN
     Indication: Product used for unknown indication
     Dosage: 100 MILLIGRAM, QD,  0-1-0-0
     Route: 065
  3. CANDESARTAN [Suspect]
     Active Substance: CANDESARTAN
     Indication: Product used for unknown indication
     Dosage: 16 MILLIGRAM, QD, 1-0-0-0
     Route: 065
  4. CHLORTHALIDONE [Suspect]
     Active Substance: CHLORTHALIDONE
     Indication: Product used for unknown indication
     Dosage: 25 MILLIGRAM, QD, 1-0-0-0
     Route: 065
  5. FENTANYL [Concomitant]
     Active Substance: FENTANYL
     Dosage: 50 MICROGRAM, SCHEMA
     Route: 065
  6. METAMIZOL                          /06276701/ [Concomitant]
     Dosage: 500 MILLIGRAM, TID, 1-1-1-0
     Route: 065
  7. METOCLOPRAMID                      /00041901/ [Concomitant]
     Dosage: 10 MILLIGRAM, TID 1-1-1-0
     Route: 065

REACTIONS (12)
  - Pallor [Unknown]
  - Anaemia [Unknown]
  - Sepsis [Unknown]
  - Systemic infection [Unknown]
  - Ulcer [Unknown]
  - Hyperkalaemia [Unknown]
  - General physical health deterioration [Unknown]
  - Renal impairment [Unknown]
  - Muscular weakness [Unknown]
  - Hypotension [Unknown]
  - Pain in extremity [Unknown]
  - Hypothermia [Unknown]
